FAERS Safety Report 5810463-2 (Version None)
Quarter: 2008Q3

REPORT INFORMATION
  Report Type: 
  Country: None (occurrence: None)
  Receive Date: 20080715
  Receipt Date: 20080703
  Transmission Date: 20090109
  Serious: Yes (Life-Threatening, Disabling, Other)
  Sender: FDA-Public Use
  Company Number: CL-PFIZER INC-2008052658

PATIENT
  Age: 82 Year
  Sex: Female

DRUGS (5)
  1. LYRICA [Suspect]
     Indication: NEURALGIA
     Route: 048
     Dates: start: 20080618, end: 20080621
  2. LOSARTAN POTASSIUM [Concomitant]
     Route: 048
  3. ATENOLOL [Concomitant]
     Route: 048
  4. FLUOXETINE [Concomitant]
     Indication: DEPRESSION
     Route: 048
     Dates: end: 20080601
  5. HYDROCHLOROTHIAZIDE [Concomitant]
     Route: 048

REACTIONS (6)
  - CENTRAL NERVOUS SYSTEM LESION [None]
  - CONFUSIONAL STATE [None]
  - GAIT DISTURBANCE [None]
  - HEADACHE [None]
  - MEMORY IMPAIRMENT [None]
  - SPEECH DISORDER [None]
